FAERS Safety Report 17673584 (Version 1)
Quarter: 2020Q2

REPORT INFORMATION
  Report Type: Report from Study
  Country: US (occurrence: US)
  Receive Date: 20200415
  Receipt Date: 20200415
  Transmission Date: 20200714
  Serious: Yes (Hospitalization)
  Sender: FDA-Public Use
  Company Number: US-SA-2020SA097521

PATIENT
  Age: 32 Year
  Sex: Male

DRUGS (11)
  1. ACETAMINOPHEN. [Concomitant]
     Active Substance: ACETAMINOPHEN
     Dosage: 1000 MG, 1X
     Route: 042
     Dates: start: 20200330, end: 20200330
  2. ZINC. [Concomitant]
     Active Substance: ZINC
     Indication: SUPPLEMENTATION THERAPY
     Dosage: 220 MG, QD
     Route: 048
     Dates: start: 20200331
  3. HYDROXYCHLOROQUINE [Concomitant]
     Active Substance: HYDROXYCHLOROQUINE
     Indication: CORONAVIRUS INFECTION
     Dosage: 400 MG, X 2 DOSES
     Route: 048
     Dates: start: 20200329, end: 20200330
  4. ACETAMINOPHEN. [Concomitant]
     Active Substance: ACETAMINOPHEN
     Indication: PYREXIA
     Dosage: 625 MG, PRN
     Route: 048
     Dates: start: 20200229
  5. ENOXAPARIN [Concomitant]
     Active Substance: ENOXAPARIN
     Indication: DEEP VEIN THROMBOSIS
     Dosage: 40 ?G, QD
     Route: 058
     Dates: start: 20200329
  6. HYDROXYCHLOROQUINE [Concomitant]
     Active Substance: HYDROXYCHLOROQUINE
     Dosage: 200 MG, X 8 DOSES
     Route: 048
     Dates: start: 20200330
  7. ANAKINRA [Concomitant]
     Active Substance: ANAKINRA
     Dosage: 100 MG, Q12H
     Route: 058
     Dates: start: 20200406
  8. METHYLPREDNISOLONE. [Concomitant]
     Active Substance: METHYLPREDNISOLONE
     Dosage: 60 UG, Q12H
     Route: 042
     Dates: start: 20200401
  9. ANAKINRA [Concomitant]
     Active Substance: ANAKINRA
     Indication: HYPOXIA
     Dosage: 100 MG, QD
     Route: 058
     Dates: start: 20200402, end: 20200405
  10. SARILUMAB [Suspect]
     Active Substance: SARILUMAB
     Indication: CORONAVIRUS INFECTION
     Dosage: 400 MG, 1X
     Route: 042
     Dates: start: 20200331, end: 20200331
  11. METHYLPREDNISOLONE. [Concomitant]
     Active Substance: METHYLPREDNISOLONE
     Indication: DYSPNOEA
     Dosage: 80 UG, Q12H
     Route: 042
     Dates: start: 20200331, end: 20200401

REACTIONS (1)
  - Alanine aminotransferase increased [Not Recovered/Not Resolved]

NARRATIVE: CASE EVENT DATE: 20200406
